FAERS Safety Report 7086379-3 (Version None)
Quarter: 2010Q4

REPORT INFORMATION
  Report Type: 
  Country: None (occurrence: None)
  Receive Date: 20101028
  Receipt Date: 20101019
  Transmission Date: 20110411
  Serious: Yes (Disabling)
  Sender: FDA-Public Use
  Company Number: OSCN-NO-0604S-0095

PATIENT
  Age: 56 Year
  Sex: Male

DRUGS (3)
  1. OMNISCAN [Suspect]
     Indication: RENAL TRANSPLANT
     Dosage: 30 ML, SINGLE DOSE, I.V. ; 50 ML, SINGLE DOSE, I.V. ; 46 ML, SINGLE DOSE, I.V.
     Route: 042
     Dates: start: 20001019, end: 20001019
  2. OMNISCAN [Suspect]
     Indication: RENAL TRANSPLANT
     Dosage: 30 ML, SINGLE DOSE, I.V. ; 50 ML, SINGLE DOSE, I.V. ; 46 ML, SINGLE DOSE, I.V.
     Route: 042
     Dates: start: 20020602, end: 20020602
  3. OMNISCAN [Suspect]
     Indication: RENAL TRANSPLANT
     Dosage: 30 ML, SINGLE DOSE, I.V. ; 50 ML, SINGLE DOSE, I.V. ; 46 ML, SINGLE DOSE, I.V.
     Route: 042
     Dates: start: 20031205, end: 20031205

REACTIONS (5)
  - CARDIAC ARREST [None]
  - NEPHROGENIC SYSTEMIC FIBROSIS [None]
  - PNEUMONIA [None]
  - SUDDEN DEATH [None]
  - WHEELCHAIR USER [None]
